FAERS Safety Report 12682215 (Version 2)
Quarter: 2017Q1

REPORT INFORMATION
  Report Type: Report from Study
  Country: None (occurrence: US)
  Receive Date: 20160824
  Receipt Date: 20170126
  Transmission Date: 20170428
  Serious: Yes (Other)
  Sender: FDA-Public Use
  Company Number: US-ABBVIE-16P-163-1705768-00

PATIENT
  Sex: Male

DRUGS (4)
  1. TESTOSTERONE. [Suspect]
     Active Substance: TESTOSTERONE
     Indication: PRODUCT USED FOR UNKNOWN INDICATION
     Route: 030
     Dates: start: 2015, end: 2016
  2. ANDROGEL [Suspect]
     Active Substance: TESTOSTERONE
     Route: 061
     Dates: start: 201607, end: 20160817
  3. ANDRODERM [Suspect]
     Active Substance: TESTOSTERONE
     Indication: PRODUCT USED FOR UNKNOWN INDICATION
     Route: 062
     Dates: start: 2016
  4. ANDROGEL [Suspect]
     Active Substance: TESTOSTERONE
     Indication: PRODUCT USED FOR UNKNOWN INDICATION
     Route: 061
     Dates: start: 2014, end: 2015

REACTIONS (3)
  - Drug ineffective [Unknown]
  - Intentional product misuse [Unknown]
  - Suicidal ideation [Recovered/Resolved]

NARRATIVE: CASE EVENT DATE: 2016
